FAERS Safety Report 4952351-X (Version None)
Quarter: 2006Q1

REPORT INFORMATION
  Report Type: 
  Country: None (occurrence: None)
  Receive Date: 20060323
  Receipt Date: 20051208
  Transmission Date: 20060701
  Serious: Yes (Hospitalization)
  Sender: FDA-Public Use
  Company Number: FR-BOEHRINGER INGELHEIM PHARMACEUTICALS, INC.-2005-FF-00906FF

PATIENT
  Sex: Male
  Weight: 95 kg

DRUGS (4)
  1. VIRAMUNE [Suspect]
     Indication: HIV INFECTION
     Route: 048
     Dates: start: 20051017
  2. COMBIVIR [Concomitant]
     Indication: HIV INFECTION
     Route: 048
     Dates: start: 20051001
  3. PREVISCAN [Concomitant]
     Indication: PROTEIN S DEFICIENCY
     Route: 048
  4. DEPAKENE [Concomitant]

REACTIONS (2)
  - DRUG INTERACTION [None]
  - PHLEBITIS [None]
